FAERS Safety Report 4797290-2 (Version None)
Quarter: 2005Q4

REPORT INFORMATION
  Report Type: 
  Country: None (occurrence: None)
  Receive Date: 20051013
  Receipt Date: 20050930
  Transmission Date: 20060501
  Serious: Yes (Hospitalization)
  Sender: FDA-Public Use
  Company Number: JP-JPN-A20052324

PATIENT
  Age: 33 Year
  Sex: Male

DRUGS (7)
  1. SEREVENT [Suspect]
     Indication: ASTHMA
     Dosage: 50MCG TWICE PER DAY
     Route: 055
     Dates: start: 20041122, end: 20041221
  2. FLUTIDE DISKUS [Suspect]
     Indication: ASTHMA
     Dosage: 200MCG TWICE PER DAY
     Route: 055
     Dates: start: 20041122, end: 20041221
  3. THEO-DUR [Concomitant]
     Indication: ASTHMA
     Route: 048
     Dates: start: 20041207, end: 20050121
  4. SINGULAIR [Concomitant]
     Indication: ASTHMA
     Route: 048
     Dates: start: 20041207, end: 20050121
  5. PREDNISOLONE [Concomitant]
     Indication: ASTHMA
     Route: 048
     Dates: start: 20041222, end: 20050106
  6. PENTOIL [Concomitant]
     Route: 048
  7. MUCOSOLVAN [Concomitant]
     Route: 048

REACTIONS (1)
  - UPPER RESPIRATORY TRACT INFLAMMATION [None]
